FAERS Safety Report 4301883-6 (Version None)
Quarter: 2004Q1

REPORT INFORMATION
  Report Type: 
  Country: None (occurrence: None)
  Receive Date: 20040223
  Receipt Date: 20030411
  Transmission Date: 20041129
  Serious: Yes (Other)
  Sender: FDA-Public Use
  Company Number: WAES 0304USA01287

PATIENT
  Age: 66 Year
  Sex: Male

DRUGS (4)
  1. ASPIRIN [Concomitant]
     Indication: PROPHYLAXIS
  2. ACIPHEX [Concomitant]
  3. VIOXX [Suspect]
     Indication: ARTHRALGIA
     Route: 048
     Dates: start: 20000101, end: 20010101
  4. VIOXX [Suspect]
     Route: 048
     Dates: start: 20000101, end: 20010101

REACTIONS (14)
  - ARTHRALGIA [None]
  - BLINDNESS [None]
  - CATARACT [None]
  - EJECTION FRACTION DECREASED [None]
  - HEADACHE [None]
  - HYPOKINESIA [None]
  - JOINT RANGE OF MOTION DECREASED [None]
  - MYOCARDIAL INFARCTION [None]
  - OPTIC ATROPHY [None]
  - OPTIC ISCHAEMIC NEUROPATHY [None]
  - PAPILLOEDEMA [None]
  - POLYTRAUMATISM [None]
  - RETINAL VASCULAR OCCLUSION [None]
  - TENSION HEADACHE [None]
